FAERS Safety Report 24462510 (Version 2)
Quarter: 2025Q1

REPORT INFORMATION
  Report Type: Spontaneous
  Country: AT (occurrence: AT)
  Receive Date: 20241018
  Receipt Date: 20250207
  Transmission Date: 20250409
  Serious: Yes (Other)
  Sender: RANBAXY
  Company Number: AT-SUN PHARMACEUTICAL INDUSTRIES LTD-2024R1-474104

PATIENT
  Age: 25 Year
  Sex: Female

DRUGS (3)
  1. CISPLATIN [Suspect]
     Active Substance: CISPLATIN
     Indication: Adenocarcinoma
     Route: 065
     Dates: start: 202212, end: 202301
  2. GEMCITABINE [Suspect]
     Active Substance: GEMCITABINE
     Indication: Adenocarcinoma
     Route: 065
     Dates: start: 202212, end: 202301
  3. DURVALUMAB [Suspect]
     Active Substance: DURVALUMAB
     Indication: Adenocarcinoma
     Route: 065
     Dates: start: 202212, end: 202301

REACTIONS (2)
  - Disease progression [Unknown]
  - Cholangiocarcinoma [Unknown]
